FAERS Safety Report 6212252-6 (Version None)
Quarter: 2009Q2

REPORT INFORMATION
  Report Type: 
  Country: None (occurrence: None)
  Receive Date: 20090602
  Receipt Date: 20090528
  Transmission Date: 20091009
  Serious: Yes (Death)
  Sender: FDA-Public Use
  Company Number: PH-ABBOTT-09P-128-0575986-00

PATIENT
  Age: 10 Year
  Sex: Male

DRUGS (2)
  1. SEVOFLURANE [Suspect]
     Indication: CIRCUMCISION
     Route: 055
  2. SEVOFLURANE [Suspect]
     Indication: TONSILLECTOMY

REACTIONS (2)
  - HYPERTHERMIA MALIGNANT [None]
  - JAW DISORDER [None]
